FAERS Safety Report 6109533-3 (Version None)
Quarter: 2009Q1

REPORT INFORMATION
  Report Type: 
  Country: None (occurrence: None)
  Receive Date: 20090306
  Receipt Date: 20090224
  Transmission Date: 20090719
  Serious: Yes (Hospitalization)
  Sender: FDA-Public Use
  Company Number: 2009-192196-NL

PATIENT
  Age: 23 Year
  Sex: Female
  Weight: 77.1 kg

DRUGS (2)
  1. IMPLANON [Suspect]
     Indication: CONTRACEPTION
     Dosage: SUBDERMAL
     Route: 059
     Dates: start: 20090216, end: 20090221
  2. MULTI-VITAMINS [Concomitant]

REACTIONS (1)
  - JAUNDICE [None]
